FAERS Safety Report 8281253-9 (Version None)
Quarter: 2012Q2

REPORT INFORMATION
  Report Type: 
  Country: None (occurrence: None)
  Receive Date: 20120413
  Receipt Date: 20120405
  Transmission Date: 20120825
  Serious: Yes (Other)
  Sender: FDA-Public Use
  Company Number: DE-BRISTOL-MYERS SQUIBB COMPANY-16474975

PATIENT
  Age: 68 Year
  Sex: Male

DRUGS (4)
  1. HYDROXYUREA [Suspect]
     Indication: CHRONIC MYELOID LEUKAEMIA
     Dates: start: 20020101, end: 20110101
  2. NILOTINIB [Suspect]
     Dates: start: 20080101
  3. THIOGUANINE [Suspect]
     Dates: start: 20090101, end: 20110101
  4. IMATINIB MESYLATE [Suspect]
     Indication: CHRONIC MYELOID LEUKAEMIA
     Dosage: ALSO RECEIVED IN 2010
     Dates: start: 20040101

REACTIONS (7)
  - NEOPLASM MALIGNANT [None]
  - CARDIAC FAILURE [None]
  - MAJOR DEPRESSION [None]
  - PENIS CARCINOMA [None]
  - SPINAL OSTEOARTHRITIS [None]
  - HAEMORRHOIDAL HAEMORRHAGE [None]
  - LEUKOCYTOSIS [None]
